FAERS Safety Report 8206151-8 (Version None)
Quarter: 2012Q1

REPORT INFORMATION
  Report Type: 
  Country: None (occurrence: None)
  Receive Date: 20120313
  Receipt Date: 20120301
  Transmission Date: 20120608
  Serious: Yes (Other)
  Sender: FDA-Public Use
  Company Number: BR-ELI_LILLY_AND_COMPANY-BR201203001086

PATIENT
  Age: 56 Year
  Sex: Female

DRUGS (9)
  1. ATORVASTATIN [Concomitant]
     Dosage: UNK, UNKNOWN
     Route: 065
  2. PRISTIQ [Concomitant]
     Dosage: UNK, UNKNOWN
     Route: 065
  3. PROPRANOLOL [Concomitant]
     Dosage: UNK, UNKNOWN
     Route: 065
  4. AD-TIL [Concomitant]
     Route: 065
  5. RANITIDINE HCL [Concomitant]
     Dosage: UNK, UNKNOWN
     Route: 065
  6. NEXUS [Concomitant]
     Dosage: UNK, UNKNOWN
     Route: 065
  7. SYNTHROID [Concomitant]
     Dosage: UNK, UNKNOWN
     Route: 065
  8. COLECALCIFEROL [Concomitant]
     Dosage: UNK, UNKNOWN
     Route: 065
  9. BYETTA [Suspect]
     Indication: WEIGHT DECREASED
     Dosage: 5 UG, BID
     Route: 065
     Dates: start: 20120301

REACTIONS (8)
  - HYPOAESTHESIA [None]
  - MALAISE [None]
  - HYPERHIDROSIS [None]
  - OFF LABEL USE [None]
  - SPEECH DISORDER [None]
  - BLOOD PRESSURE INCREASED [None]
  - DIZZINESS [None]
  - HYPOGLYCAEMIA [None]
